FAERS Safety Report 4974501-1 (Version None)
Quarter: 2006Q1

REPORT INFORMATION
  Report Type: 
  Country: None (occurrence: None)
  Receive Date: 20060216
  Receipt Date: 20060103
  Transmission Date: 20060701
  Serious: No
  Sender: FDA-Public Use
  Company Number: TPA2006A00021

PATIENT
  Age: 22 Year
  Sex: Male
  Weight: 65.7716 kg

DRUGS (3)
  1. ROZEREM [Suspect]
     Indication: SLEEP DISORDER
     Dosage: 8 MG, HS, PER ORAL
     Route: 048
     Dates: start: 20051228, end: 20051231
  2. FLUVOXAMINE (FLUVOXAMINE) (150 MILLIGRAM) [Concomitant]
     Indication: SLEEP DISORDER
     Dosage: 8 MG, HS, PER ORAL
     Route: 048
     Dates: start: 20051228, end: 20051231
  3. ALLEGRA (FEXOFENADINE HYDROCHLORIDE) (60 MILLIGRAM)) [Concomitant]

REACTIONS (2)
  - MIDDLE INSOMNIA [None]
  - SOMNOLENCE [None]
